FAERS Safety Report 8069738-1 (Version None)
Quarter: 2012Q1

REPORT INFORMATION
  Report Type: 
  Country: None (occurrence: None)
  Receive Date: 20120125
  Receipt Date: 20120118
  Transmission Date: 20120608
  Serious: Yes (Other)
  Sender: FDA-Public Use
  Company Number: AU-ABBOTT-11P-008-0876073-00

PATIENT

DRUGS (1)
  1. HUMIRA [Suspect]
     Indication: GRANULOMA ANNULARE
     Dates: end: 20111001

REACTIONS (8)
  - OFF LABEL USE [None]
  - PLEURISY [None]
  - CHEST PAIN [None]
  - TRICHORRHEXIS [None]
  - LETHARGY [None]
  - SINUSITIS [None]
  - SYSTEMIC LUPUS ERYTHEMATOSUS [None]
  - ANTINUCLEAR ANTIBODY INCREASED [None]
